FAERS Safety Report 26051435 (Version 1)
Quarter: 2025Q4

REPORT INFORMATION
  Report Type: Spontaneous
  Country: GB (occurrence: GB)
  Receive Date: 20251117
  Receipt Date: 20251117
  Transmission Date: 20260117
  Serious: Yes (Other)
  Sender: JOHNSON AND JOHNSON
  Company Number: None

PATIENT
  Age: 34 Year
  Sex: Male

DRUGS (4)
  1. PALIPERIDONE [Suspect]
     Active Substance: PALIPERIDONE
     Indication: Product used for unknown indication
  2. PALIPERIDONE [Suspect]
     Active Substance: PALIPERIDONE
  3. PALIPERIDONE [Suspect]
     Active Substance: PALIPERIDONE
  4. RISPERIDONE [Suspect]
     Active Substance: RISPERIDONE
     Indication: Product used for unknown indication

REACTIONS (4)
  - Immune system disorder [Recovered/Resolved]
  - Hypertonic bladder [Recovered/Resolved]
  - Sleep disorder [Recovered/Resolved]
  - Anhedonia [Recovering/Resolving]
